FAERS Safety Report 11615174 (Version 3)
Quarter: 2016Q3

REPORT INFORMATION
  Report Type: Spontaneous
  Country: US (occurrence: US)
  Receive Date: 20151009
  Receipt Date: 20160823
  Transmission Date: 20161109
  Serious: No
  Sender: FDA-Public Use
  Company Number: US-PFIZER INC-2015332331

PATIENT
  Age: 83 Year
  Sex: Female
  Weight: 56 kg

DRUGS (5)
  1. LYRICA [Suspect]
     Active Substance: PREGABALIN
     Indication: BONE PAIN
     Dosage: 50 MG, 1X/DAY (ONE AT BED TIME)
     Route: 048
     Dates: start: 20150930
  2. LORAZEPAM. [Concomitant]
     Active Substance: LORAZEPAM
     Indication: ANXIETY
     Dosage: 5 MG, AS NEEDED (OR ONE OR TWO A DAY)
  3. LYRICA [Suspect]
     Active Substance: PREGABALIN
     Indication: ARTHRALGIA
  4. AMLODIPINE [Concomitant]
     Active Substance: AMLODIPINE BESYLATE
     Indication: HYPERTENSION
     Dosage: HALF A TABLET OF 5 MG IN THE MORNING AND 2.5 MG IN EVENING
  5. OMEPRAZOLE. [Concomitant]
     Active Substance: OMEPRAZOLE
     Indication: DYSPEPSIA
     Dosage: 20 MG, UNK

REACTIONS (8)
  - Diarrhoea [Unknown]
  - Intervertebral disc degeneration [Unknown]
  - Fall [Unknown]
  - Musculoskeletal discomfort [Unknown]
  - Pain [Unknown]
  - Anxiety [Unknown]
  - Product barcode issue [Unknown]
  - Back disorder [Unknown]

NARRATIVE: CASE EVENT DATE: 20150930
